FAERS Safety Report 8420161-7 (Version None)
Quarter: 2012Q2

REPORT INFORMATION
  Report Type: 
  Country: None (occurrence: None)
  Receive Date: 20120323
  Receipt Date: 20111222
  Transmission Date: 20120825
  Serious: Yes (Hospitalization)
  Sender: FDA-Public Use
  Company Number: 163-21880-11121255

PATIENT
  Age: 79 Year
  Sex: Male
  Weight: 68.4932 kg

DRUGS (8)
  1. POTASSIUM CHLROIDE (POTASSIUM CHLORIDE) [Concomitant]
  2. REVLIMID [Suspect]
     Indication: LYMPHOMA
     Dosage: 10 MG, 1 IN 1 D, PO
     Route: 048
     Dates: start: 20111010, end: 20111221
  3. RITUXAN [Concomitant]
  4. PROSCAR [Concomitant]
  5. ALLOPURINOL [Concomitant]
  6. NEURONTIN [Concomitant]
  7. NITROFURANTOIN [Concomitant]
  8. LOMOTIL [Concomitant]

REACTIONS (3)
  - FEBRILE NEUTROPENIA [None]
  - DISEASE PROGRESSION [None]
  - LYMPHOMA [None]
